FAERS Safety Report 8053476-5 (Version None)
Quarter: 2012Q1

REPORT INFORMATION
  Report Type: 
  Country: None (occurrence: None)
  Receive Date: 20120118
  Receipt Date: 20120112
  Transmission Date: 20120608
  Serious: Yes (Other)
  Sender: FDA-Public Use
  Company Number: BR-PFIZER INC-2012010463

PATIENT
  Sex: Female
  Weight: 62 kg

DRUGS (1)
  1. DEPO-PROVERA [Suspect]
     Indication: CONTRACEPTION
     Dosage: 150 MG, UNK
     Route: 030
     Dates: start: 20111001

REACTIONS (3)
  - HAEMORRHAGE [None]
  - HEADACHE [None]
  - ABDOMINAL PAIN [None]
